FAERS Safety Report 12458363 (Version 2)
Quarter: 2016Q2

REPORT INFORMATION
  Report Type: Spontaneous
  Country: IT (occurrence: IT)
  Receive Date: 20160613
  Receipt Date: 20160615
  Transmission Date: 20160815
  Serious: Yes (Hospitalization)
  Sender: FDA-Public Use
  Company Number: IT-ROCHE-1773114

PATIENT
  Age: 36 Year
  Sex: Male

DRUGS (4)
  1. RIVOTRIL [Suspect]
     Active Substance: CLONAZEPAM
     Indication: INTERVERTEBRAL DISC DISORDER
     Dosage: 2.5 MG/ML BOTTLE CONTAINING 10 ML
     Route: 048
  2. TARGIN [Suspect]
     Active Substance: NALOXONE HYDROCHLORIDE\OXYCODONE HYDROCHLORIDE
     Indication: INTERVERTEBRAL DISC DISORDER
     Dosage: 5 MG/2.5 MG PROLONGED-RELEASE TABLETS
     Route: 048
     Dates: start: 20160428, end: 20160428
  3. TACHIPIRINA [Suspect]
     Active Substance: ACETAMINOPHEN
     Indication: PAIN
     Route: 048
  4. CYMBALTA [Suspect]
     Active Substance: DULOXETINE HYDROCHLORIDE
     Indication: DEPRESSION
     Route: 048

REACTIONS (5)
  - Drug abuse [Unknown]
  - Alanine aminotransferase increased [Recovering/Resolving]
  - Altered state of consciousness [Recovering/Resolving]
  - Confusional state [Recovering/Resolving]
  - Disorientation [Recovering/Resolving]

NARRATIVE: CASE EVENT DATE: 20160428
